FAERS Safety Report 25522064 (Version 2)
Quarter: 2025Q3

REPORT INFORMATION
  Report Type: Spontaneous
  Country: CN (occurrence: CN)
  Receive Date: 20250707
  Receipt Date: 20250810
  Transmission Date: 20251021
  Serious: Yes (Hospitalization)
  Sender: ALEXION PHARMACEUTICALS
  Company Number: CN-ASTRAZENECA-202507CHN000688CN

PATIENT
  Age: 22 Year
  Sex: Female
  Weight: 48.3 kg

DRUGS (4)
  1. LOSEC [Suspect]
     Active Substance: OMEPRAZOLE
     Indication: Antacid therapy
     Dosage: 10 MILLIGRAM, QD
     Dates: start: 20250626, end: 20250626
  2. DOMPERIDONE [Suspect]
     Active Substance: DOMPERIDONE
     Indication: Gastrointestinal disorder
     Dosage: 10 MILLIGRAM, TID
     Dates: start: 20250626, end: 20250626
  3. ACETAMINOPHEN [Suspect]
     Active Substance: ACETAMINOPHEN
     Indication: Antipyresis
     Dosage: 0.5 MILLIGRAM, QD
     Dates: start: 20250626, end: 20250626
  4. LEVOFLOXACIN [Suspect]
     Active Substance: LEVOFLOXACIN
     Indication: Infection
     Dosage: 0.5 GRAM, QD
     Dates: start: 20250626, end: 20250626

REACTIONS (3)
  - Abdominal pain upper [Recovering/Resolving]
  - Hyperkalaemia [Recovering/Resolving]
  - Myocardial necrosis marker decreased [Recovering/Resolving]

NARRATIVE: CASE EVENT DATE: 20250626
